FAERS Safety Report 10974724 (Version 5)
Quarter: 2015Q3

REPORT INFORMATION
  Report Type: Spontaneous
  Country: JP (occurrence: JP)
  Receive Date: 20150401
  Receipt Date: 20150702
  Transmission Date: 20151125
  Serious: Yes (Hospitalization)
  Sender: FDA-Public Use
  Company Number: JP-JNJFOC-20150322661

PATIENT
  Age: 68 Year
  Sex: Female
  Weight: 67 kg

DRUGS (10)
  1. ETIZOLAM [Concomitant]
     Active Substance: ETIZOLAM
     Route: 048
  2. GOODMIN [Concomitant]
     Active Substance: BROTIZOLAM
     Route: 048
  3. MIYA-BM [Concomitant]
     Active Substance: CLOSTRIDIUM BUTYRICUM SPORES STRAIN M-55
     Route: 048
  4. METHOTREXATE [Suspect]
     Active Substance: METHOTREXATE
     Indication: RHEUMATOID ARTHRITIS
     Route: 048
     Dates: start: 20140417, end: 20150220
  5. FRANDOL [Concomitant]
     Active Substance: ISOSORBIDE DINITRATE
     Route: 062
  6. MORPHINE HYDROCHLORIDE [Suspect]
     Active Substance: MORPHINE HYDROCHLORIDE
     Indication: PRODUCT USED FOR UNKNOWN INDICATION
     Dosage: AS PER NECESSARY
     Route: 048
  7. HOKUNALIN [Concomitant]
     Active Substance: TULOBUTEROL
     Route: 062
  8. SIMPONI [Suspect]
     Active Substance: GOLIMUMAB
     Indication: RHEUMATOID ARTHRITIS
     Route: 058
     Dates: start: 20140412, end: 20150226
  9. ETANERCEPT [Suspect]
     Active Substance: ETANERCEPT
     Indication: RHEUMATOID ARTHRITIS
     Route: 065
     Dates: start: 20140916, end: 20140922
  10. TAKEPRON [Concomitant]
     Active Substance: LANSOPRAZOLE
     Route: 048

REACTIONS (7)
  - Stomatitis [Recovered/Resolved]
  - Disorientation [Recovered/Resolved]
  - Hepatic function abnormal [Recovered/Resolved]
  - Asthenia [Not Recovered/Not Resolved]
  - Staphylococcal abscess [Recovered/Resolved]
  - Pancytopenia [Recovered/Resolved]
  - Bacillus bacteraemia [Recovered/Resolved]

NARRATIVE: CASE EVENT DATE: 20150226
